FAERS Safety Report 10592856 (Version 3)
Quarter: 2015Q4

REPORT INFORMATION
  Report Type: Report from Study
  Country: AR (occurrence: AR)
  Receive Date: 20141119
  Receipt Date: 20151020
  Transmission Date: 20160304
  Serious: Yes (Hospitalization, Other)
  Sender: FDA-Public Use
  Company Number: PHHY2014AR150612

PATIENT
  Sex: Female
  Weight: 10.2 kg

DRUGS (1)
  1. GILENYA [Suspect]
     Active Substance: FINGOLIMOD HYDROCHLORIDE
     Indication: FOETAL EXPOSURE DURING PREGNANCY
     Dosage: MATERNAL DOSE: 0.5 MG DAILY
     Route: 064
     Dates: start: 2013, end: 201403

REACTIONS (2)
  - Jaundice [Recovering/Resolving]
  - Foetal exposure during pregnancy [Unknown]
